FAERS Safety Report 5723668-6 (Version None)
Quarter: 2008Q2

REPORT INFORMATION
  Report Type: 
  Country: None (occurrence: None)
  Receive Date: 20080430
  Receipt Date: 20080423
  Transmission Date: 20081010
  Serious: Yes (Life-Threatening)
  Sender: FDA-Public Use
  Company Number: JP-BAXTER-2008BH004025

PATIENT
  Age: 67 Year
  Sex: Male

DRUGS (4)
  1. SUPRANE [Suspect]
     Indication: ANAESTHESIA
     Route: 055
     Dates: start: 20080422, end: 20080422
  2. ROPION [Concomitant]
     Indication: PAIN
     Route: 065
     Dates: start: 20080422, end: 20080422
  3. FENTANYL CITRATE [Concomitant]
     Indication: PAIN
     Route: 065
     Dates: start: 20080422, end: 20080422
  4. FENTANYL CITRATE [Concomitant]
     Route: 065
     Dates: start: 20080422, end: 20080422

REACTIONS (2)
  - ALTERED STATE OF CONSCIOUSNESS [None]
  - RESPIRATORY ARREST [None]
